FAERS Safety Report 18614011 (Version 1)
Quarter: 2020Q4

REPORT INFORMATION
  Report Type: Spontaneous
  Country: US (occurrence: US)
  Receive Date: 20201214
  Receipt Date: 20201214
  Transmission Date: 20210114
  Serious: No
  Sender: FDA-Public Use
  Company Number: US-NOVOPROD-734338

PATIENT
  Sex: Female

DRUGS (2)
  1. LEVEMIR [Suspect]
     Active Substance: INSULIN DETEMIR
     Indication: TYPE 2 DIABETES MELLITUS
     Dosage: 30 IU, QD
     Route: 058
     Dates: start: 202002
  2. LEVEMIR [Suspect]
     Active Substance: INSULIN DETEMIR
     Dosage: 35 IU, QD (DOSE INCREASED BY 5 UNITS)
     Route: 058

REACTIONS (5)
  - Hepatic steatosis [Unknown]
  - Urinary tract infection [Recovered/Resolved]
  - Blood glucose increased [Unknown]
  - Tooth extraction [Recovered/Resolved]
  - Endodontic procedure [Recovered/Resolved]

NARRATIVE: CASE EVENT DATE: 202002
